FAERS Safety Report 13427816 (Version 2)
Quarter: 2017Q2

REPORT INFORMATION
  Report Type: Spontaneous
  Country: CN (occurrence: CN)
  Receive Date: 20170411
  Receipt Date: 20170504
  Transmission Date: 20170830
  Serious: Yes (Hospitalization, Other)
  Sender: FDA-Public Use
  Company Number: CN-ASTRAZENECA-2017SE36986

PATIENT
  Sex: Female
  Weight: 50 kg

DRUGS (1)
  1. GEFITINIB [Suspect]
     Active Substance: GEFITINIB
     Indication: CARCINOID TUMOUR PULMONARY
     Route: 048
     Dates: start: 20160615, end: 20161002

REACTIONS (4)
  - Interstitial lung disease [Recovering/Resolving]
  - Pyrexia [Unknown]
  - Respiratory failure [Unknown]
  - Productive cough [Unknown]
